FAERS Safety Report 5448156-6 (Version None)
Quarter: 2007Q3

REPORT INFORMATION
  Report Type: 
  Country: None (occurrence: None)
  Receive Date: 20070905
  Receipt Date: 20070821
  Transmission Date: 20080115
  Serious: Yes (Hospitalization)
  Sender: FDA-Public Use
  Company Number: THQ2007A00823

PATIENT
  Sex: Female

DRUGS (4)
  1. ACTOS [Suspect]
     Indication: TYPE 2 DIABETES MELLITUS
     Dosage: 15 MG (15 MG, 1 IN 1 D), PER ORAL
     Route: 048
     Dates: start: 20060621, end: 20070301
  2. METFORMIN HCL [Concomitant]
  3. PRIMASPAN            (ACETYLSALICYLIC ACID) [Concomitant]
  4. TRIPTYL            (AMITRIPTYLINE HYDROCHLORIDE) [Concomitant]

REACTIONS (2)
  - PNEUMONIA [None]
  - RESPIRATORY TRACT INFECTION [None]
